FAERS Safety Report 10068460 (Version 4)
Quarter: 2014Q2

REPORT INFORMATION
  Report Type: Spontaneous
  Country: US (occurrence: US)
  Receive Date: 20140409
  Receipt Date: 20140528
  Transmission Date: 20141212
  Serious: Yes (Other)
  Sender: FDA-Public Use
  Company Number: US-SHIONOGI, INC-2014000137

PATIENT
  Age: 58 Year
  Sex: Female

DRUGS (7)
  1. OSPHENA [Suspect]
     Indication: PRODUCT USED FOR UNKNOWN INDICATION
     Dosage: UNK
     Route: 065
     Dates: start: 20140307
  2. PRILOSEC                           /00661201/ [Concomitant]
     Indication: PRODUCT USED FOR UNKNOWN INDICATION
     Dosage: UNK
     Route: 065
  3. SYNTHROID [Concomitant]
     Indication: PRODUCT USED FOR UNKNOWN INDICATION
     Dosage: UNK
     Route: 065
  4. VITAMIN D                          /00107901/ [Concomitant]
     Indication: PRODUCT USED FOR UNKNOWN INDICATION
     Dosage: UNK
     Route: 065
  5. MULTIVITAMIN                       /00097801/ [Concomitant]
     Indication: PRODUCT USED FOR UNKNOWN INDICATION
     Dosage: UNK
     Route: 065
  6. VITAMIN E                          /00110501/ [Concomitant]
     Indication: PRODUCT USED FOR UNKNOWN INDICATION
     Dosage: UNK
     Route: 065
  7. VITAMIN C                          /00008001/ [Concomitant]
     Indication: PRODUCT USED FOR UNKNOWN INDICATION
     Dosage: 1 PILL, UNK
     Route: 048

REACTIONS (15)
  - Stevens-Johnson syndrome [Unknown]
  - Drug hypersensitivity [Unknown]
  - Swollen tongue [Unknown]
  - Skin exfoliation [Unknown]
  - Burning sensation [Unknown]
  - Erythema [Unknown]
  - Unevaluable event [Unknown]
  - Paraesthesia [Unknown]
  - Malaise [Unknown]
  - Nausea [Unknown]
  - Nasopharyngitis [Unknown]
  - Oral pain [Unknown]
  - Rash generalised [Unknown]
  - Decreased appetite [Unknown]
  - Vomiting [Unknown]
